FAERS Safety Report 5758868-2 (Version None)
Quarter: 2008Q2

REPORT INFORMATION
  Report Type: 
  Country: None (occurrence: None)
  Receive Date: 20080603
  Receipt Date: 20080603
  Transmission Date: 20081010
  Serious: Yes (Other)
  Sender: FDA-Public Use
  Company Number: None

PATIENT
  Age: 41 Year
  Sex: Female
  Weight: 65.7716 kg

DRUGS (1)
  1. DIGITEK .25 MG MYLAN BERTEK [Suspect]
     Indication: PULMONARY HYPERTENSION
     Dosage: 1 TABLET DAILY
     Dates: start: 20080220, end: 20080515

REACTIONS (4)
  - HEART RATE IRREGULAR [None]
  - NAUSEA [None]
  - PALPITATIONS [None]
  - PHARMACEUTICAL PRODUCT COMPLAINT [None]
